FAERS Safety Report 8173708-2 (Version None)
Quarter: 2012Q1

REPORT INFORMATION
  Report Type: 
  Country: None (occurrence: None)
  Receive Date: 20120229
  Receipt Date: 20120224
  Transmission Date: 20120608
  Serious: No
  Sender: FDA-Public Use
  Company Number: US-ACTELION-A-NJ2012-61105

PATIENT

DRUGS (2)
  1. VENTAVIS [Suspect]
     Indication: PULMONARY ARTERIAL HYPERTENSION
     Dosage: 5 ?G, UNK
     Route: 055
     Dates: start: 20110601, end: 20120201
  2. VENTAVIS [Suspect]
     Dosage: UNK
     Route: 055
     Dates: start: 20120201

REACTIONS (1)
  - HYPOTENSION [None]
